FAERS Safety Report 26074242 (Version 2)
Quarter: 2025Q4

REPORT INFORMATION
  Report Type: Report from Study
  Country: US (occurrence: US)
  Receive Date: 20251121
  Receipt Date: 20251202
  Transmission Date: 20260117
  Serious: Yes (Other)
  Sender: ACADIA PHARMACEUTICALS
  Company Number: US-ACADIA PHARMACEUTICALS INC.-ACA-2025-PIM-012422

PATIENT
  Sex: Male

DRUGS (23)
  1. NUPLAZID [Suspect]
     Active Substance: PIMAVANSERIN TARTRATE
     Indication: Parkinson^s disease psychosis
     Dosage: 34 MILLIGRAM, QD
     Route: 048
     Dates: start: 20251004
  2. ATORVASTATIN [Concomitant]
     Active Substance: ATORVASTATIN
     Dosage: UNK
  3. CARBIDOPA LEVODOPA [Concomitant]
     Active Substance: CARBIDOPA\LEVODOPA
     Dosage: UNK
  4. CARVEDILOL [Concomitant]
     Active Substance: CARVEDILOL
     Dosage: UNK
  5. CYANOCOBALAMIN [Concomitant]
     Active Substance: CYANOCOBALAMIN
     Dosage: UNK
  6. ELIQUIS [Concomitant]
     Active Substance: APIXABAN
     Dosage: UNK
  7. ESOMEPRA [ESOMEPRAZOLE MAGNESIUM] [Concomitant]
     Dosage: DR
  8. FLUTICASONE PROPIONATE [Concomitant]
     Active Substance: FLUTICASONE PROPIONATE
     Dosage: UNK
  9. FUROSEMIDE [Concomitant]
     Active Substance: FUROSEMIDE
     Dosage: UNK
  10. GABAPENTIN [Concomitant]
     Active Substance: GABAPENTIN
     Dosage: UNK
  11. LEVOTHYROXINE SODIUM [Concomitant]
     Active Substance: LEVOTHYROXINE SODIUM
     Dosage: UNK
  12. LORATADINE [Concomitant]
     Active Substance: LORATADINE
     Dosage: UNK
  13. MEMANTINE [Concomitant]
     Active Substance: MEMANTINE
     Dosage: UNK
  14. MONTELUKAST [Concomitant]
     Active Substance: MONTELUKAST
     Dosage: UNK
  15. OXCARBAZEPINE [Concomitant]
     Active Substance: OXCARBAZEPINE
     Dosage: UNK
  16. POTASSIUM CHLORIDE [Concomitant]
     Active Substance: POTASSIUM CHLORIDE
     Dosage: UNK
  17. QUETIAPINE [Concomitant]
     Active Substance: QUETIAPINE
     Dosage: UNK
  18. ROPINIROLE [Concomitant]
     Active Substance: ROPINIROLE
     Dosage: UNK
  19. SERTRALINE [Concomitant]
     Active Substance: SERTRALINE HYDROCHLORIDE
     Dosage: UNK
  20. TAMSULOSIN [Concomitant]
     Active Substance: TAMSULOSIN
     Dosage: UNK
  21. TOPIRAMATE [Concomitant]
     Active Substance: TOPIRAMATE
     Dosage: UNK
  22. VITAMIN E [Concomitant]
     Active Substance: .ALPHA.-TOCOPHEROL
     Dosage: 1000UNIT
  23. VYALEV [Concomitant]
     Active Substance: FOSCARBIDOPA\FOSLEVODOPA
     Dosage: 12-240MG

REACTIONS (5)
  - Hallucination, visual [Not Recovered/Not Resolved]
  - Fear [Not Recovered/Not Resolved]
  - Crying [Not Recovered/Not Resolved]
  - Condition aggravated [Not Recovered/Not Resolved]
  - Infection [Not Recovered/Not Resolved]
